FAERS Safety Report 21752810 (Version 1)
Quarter: 2022Q4

REPORT INFORMATION
  Report Type: Spontaneous
  Country: IT (occurrence: IT)
  Receive Date: 20221220
  Receipt Date: 20221220
  Transmission Date: 20230113
  Serious: Yes (Life-Threatening, Hospitalization, Other)
  Sender: FDA-Public Use
  Company Number: IT-EMA-20221125-AUTODUP-1669333617101

PATIENT
  Age: 6 Decade
  Sex: Male

DRUGS (8)
  1. DEXAMETHASONE [Suspect]
     Active Substance: DEXAMETHASONE
     Indication: Immunochemotherapy
     Dosage: UNK (3 CYCLES)
     Route: 065
     Dates: start: 201203
  2. MELPHALAN [Suspect]
     Active Substance: MELPHALAN
     Indication: Bone marrow conditioning regimen
     Dosage: UNK
     Route: 065
     Dates: start: 201209
  3. CISPLATIN [Suspect]
     Active Substance: CISPLATIN
     Indication: Immunochemotherapy
     Dosage: UNK (3 CYCLES)
     Route: 065
     Dates: start: 201203
  4. CYTARABINE [Suspect]
     Active Substance: CYTARABINE
     Indication: Immunochemotherapy
     Dosage: UNK (3 CYCLES)
     Route: 065
     Dates: start: 201203
  5. CYTARABINE [Suspect]
     Active Substance: CYTARABINE
     Indication: Bone marrow conditioning regimen
  6. RITUXIMAB [Suspect]
     Active Substance: RITUXIMAB
     Indication: Immunochemotherapy
     Dosage: UNK (3 CYCLES)
     Route: 065
     Dates: start: 201203
  7. ETOPOSIDE [Suspect]
     Active Substance: ETOPOSIDE
     Indication: Bone marrow conditioning regimen
     Dosage: UNK
     Route: 065
     Dates: start: 201209
  8. FOTEMUSTINE [Suspect]
     Active Substance: FOTEMUSTINE
     Indication: Bone marrow conditioning regimen
     Dosage: UNK
     Route: 065

REACTIONS (2)
  - Therapeutic response decreased [Unknown]
  - Neutropenia [Recovered/Resolved]

NARRATIVE: CASE EVENT DATE: 20120501
